FAERS Safety Report 7113828-4 (Version None)
Quarter: 2010Q4

REPORT INFORMATION
  Report Type: 
  Country: None (occurrence: None)
  Receive Date: 20101119
  Receipt Date: 20101109
  Transmission Date: 20110411
  Serious: Yes (Life-Threatening, Hospitalization, Other)
  Sender: FDA-Public Use
  Company Number: JP-MERCK-1011USA00252

PATIENT
  Age: 46 Year
  Sex: Male
  Weight: 55 kg

DRUGS (9)
  1. STROMECTOL [Suspect]
     Indication: ACARODERMATITIS
     Route: 048
     Dates: start: 20101005, end: 20101005
  2. STROMECTOL [Suspect]
     Route: 048
     Dates: start: 20101012, end: 20101012
  3. PEPCID RPD [Concomitant]
     Indication: GASTRITIS
     Route: 048
     Dates: start: 20080214, end: 20101014
  4. DAI-KENCHU-TO [Concomitant]
     Indication: CONSTIPATION
     Route: 048
     Dates: start: 20080214, end: 20101014
  5. SODIUM CHLORIDE [Concomitant]
     Route: 048
     Dates: end: 20101014
  6. MAGMITT [Concomitant]
     Indication: CONSTIPATION
     Route: 048
     Dates: start: 20080214, end: 20101014
  7. URALYT U [Concomitant]
     Indication: CALCULUS URINARY
     Route: 048
     Dates: start: 20090929, end: 20101014
  8. NORVASC [Concomitant]
     Indication: HYPERTENSION
     Route: 048
     Dates: start: 20080214, end: 20101014
  9. EURAX [Concomitant]
     Indication: ACARODERMATITIS
     Route: 061
     Dates: start: 20101005, end: 20101014

REACTIONS (12)
  - ACUTE RESPIRATORY FAILURE [None]
  - ALANINE AMINOTRANSFERASE INCREASED [None]
  - ASPARTATE AMINOTRANSFERASE INCREASED [None]
  - ATELECTASIS [None]
  - BLOOD BILIRUBIN INCREASED [None]
  - CONVULSION [None]
  - GAMMA-GLUTAMYLTRANSFERASE INCREASED [None]
  - HEPATIC FUNCTION ABNORMAL [None]
  - JAUNDICE [None]
  - PNEUMONIA [None]
  - PYREXIA [None]
  - RENAL IMPAIRMENT [None]
